FAERS Safety Report 20961844 (Version 1)
Quarter: 2022Q2

REPORT INFORMATION
  Report Type: Spontaneous
  Country: US (occurrence: None)
  Receive Date: 20220614
  Receipt Date: 20220614
  Transmission Date: 20220720
  Serious: Yes (Life-Threatening, Disabling, Other)
  Sender: FDA-Public Use
  Company Number: None

PATIENT
  Age: 31 Year
  Sex: Female
  Weight: 99 kg

DRUGS (6)
  1. AIMOVIG [Suspect]
     Active Substance: ERENUMAB-AOOE
     Indication: Migraine
     Dates: start: 20220411, end: 20220612
  2. LORAZEPAM [Concomitant]
     Active Substance: LORAZEPAM
  3. TIZANIDINE [Concomitant]
     Active Substance: TIZANIDINE
  4. UBRELVY [Concomitant]
     Active Substance: UBROGEPANT
  5. PROMETHAZINE [Concomitant]
     Active Substance: PROMETHAZINE HYDROCHLORIDE
  6. Womens muti-vitamin [Concomitant]

REACTIONS (16)
  - Muscle spasms [None]
  - Muscle spasms [None]
  - Vertigo [None]
  - Neck pain [None]
  - Back pain [None]
  - Constipation [None]
  - Anxiety [None]
  - Chest pain [None]
  - Chest discomfort [None]
  - Paranoia [None]
  - Insomnia [None]
  - Weight decreased [None]
  - Torticollis [None]
  - Palpitations [None]
  - Hyperhidrosis [None]
  - Muscle twitching [None]

NARRATIVE: CASE EVENT DATE: 20220612
